FAERS Safety Report 6285502-8 (Version None)
Quarter: 2009Q3

REPORT INFORMATION
  Report Type: 
  Country: None (occurrence: None)
  Receive Date: 20090727
  Receipt Date: 20090715
  Transmission Date: 20100115
  Serious: Yes (Hospitalization, Other)
  Sender: FDA-Public Use
  Company Number: PHHY2009FR29519

PATIENT
  Age: 83 Year
  Sex: Female

DRUGS (5)
  1. STALEVO 100 [Suspect]
     Indication: PARKINSON'S DISEASE
     Dosage: 150 MG, 6 DF/DAY
  2. LEPONEX [Concomitant]
     Indication: HALLUCINATION
     Dosage: 125 MG, 0.5 DF/DAY
  3. MADOPAR [Concomitant]
     Dosage: 125 MG, 0.5 DF/DAY
  4. MOTILIUM [Concomitant]
  5. FENOFIBRATE [Concomitant]
     Indication: HYPERCHOLESTEROLAEMIA
     Dosage: 200

REACTIONS (4)
  - DECREASED APPETITE [None]
  - HALLUCINATION [None]
  - PULMONARY OEDEMA [None]
  - WEIGHT DECREASED [None]
